FAERS Safety Report 11756773 (Version 1)
Quarter: 2015Q4

REPORT INFORMATION
  Report Type: Spontaneous
  Country: FR (occurrence: FR)
  Receive Date: 20151120
  Receipt Date: 20151120
  Transmission Date: 20160304
  Serious: Yes (Other)
  Sender: FDA-Public Use
  Company Number: FR-CIPLA LTD.-2015FR08592

PATIENT

DRUGS (3)
  1. PACLITAXEL. [Suspect]
     Active Substance: PACLITAXEL
     Dosage: 90 MG/M2, WEEKLY MAINTENANCE
     Route: 042
  2. CARBOPLATIN. [Suspect]
     Active Substance: CARBOPLATIN
     Indication: BRONCHIOLOALVEOLAR CARCINOMA
     Dosage: AUC 6 ON DAY 1, FOR UP TO SIX 28-DAY CYCLES
     Route: 042
  3. PACLITAXEL. [Suspect]
     Active Substance: PACLITAXEL
     Indication: BRONCHIOLOALVEOLAR CARCINOMA
     Dosage: 90 MG/M2, ON DAYS 1, 8 AND 15 FOR UP TO SIX 28-DAY CYCLES
     Route: 042

REACTIONS (1)
  - Toxicity to various agents [Unknown]
